FAERS Safety Report 25990120 (Version 1)
Quarter: 2025Q4

REPORT INFORMATION
  Report Type: Report from Study
  Country: ZA (occurrence: ZA)
  Receive Date: 20251103
  Receipt Date: 20251103
  Transmission Date: 20260117
  Serious: Yes (Other)
  Sender: ABBVIE
  Company Number: ZA-ABBVIE-6529029

PATIENT
  Sex: Female

DRUGS (2)
  1. BOTOX [Suspect]
     Active Substance: ONABOTULINUMTOXINA
     Indication: Torticollis
     Dosage: TIME INTERVAL: AS NECESSARY: DOSE: 50 UNITS, FREQUENCY: EVERY 3 MONTH, STRENGTH: 50 UNIT
     Route: 065
     Dates: start: 20220805, end: 20220805
  2. BOTOX [Suspect]
     Active Substance: ONABOTULINUMTOXINA
     Indication: Torticollis
     Dosage: TIME INTERVAL: AS NECESSARY: DOSE: 100 UNITS, FREQUENCY: EVERY 3 MONTH, STRENGTH: 100 UNIT
     Route: 065
     Dates: start: 20220805, end: 20220805

REACTIONS (1)
  - Systemic lupus erythematosus [Unknown]
